FAERS Safety Report 22180242 (Version 2)
Quarter: 2023Q2

REPORT INFORMATION
  Report Type: Spontaneous
  Country: US (occurrence: US)
  Receive Date: 20230406
  Receipt Date: 20230523
  Transmission Date: 20230721
  Serious: Yes (Life-Threatening, Hospitalization, Other)
  Sender: FDA-Public Use
  Company Number: None

PATIENT
  Age: 21 Year
  Sex: Male

DRUGS (1)
  1. BUPROPION HYDROCHLORIDE [Suspect]
     Active Substance: BUPROPION HYDROCHLORIDE
     Indication: Product used for unknown indication
     Route: 065

REACTIONS (9)
  - Cardiotoxicity [Recovering/Resolving]
  - Cardiogenic shock [Recovering/Resolving]
  - Ejection fraction decreased [Recovering/Resolving]
  - Unresponsive to stimuli [Recovering/Resolving]
  - Arrhythmia [Recovered/Resolved]
  - Bundle branch block left [Recovering/Resolving]
  - Seizure [Recovered/Resolved]
  - Hypokinesia [Recovering/Resolving]
  - Overdose [Unknown]
